FAERS Safety Report 18130567 (Version 1)
Quarter: 2020Q3

REPORT INFORMATION
  Report Type: Spontaneous
  Country: PL (occurrence: PL)
  Receive Date: 20200810
  Receipt Date: 20200810
  Transmission Date: 20201103
  Serious: Yes (Other)
  Sender: FDA-Public Use
  Company Number: PL-JNJFOC-20200806381

PATIENT
  Sex: Male

DRUGS (4)
  1. TRITACE [Concomitant]
     Active Substance: RAMIPRIL
     Dosage: UNK
  2. AMLOZEK [Concomitant]
     Active Substance: AMLODIPINE BESYLATE
     Dosage: UNK
     Dates: end: 2020
  3. ACARD [Concomitant]
     Active Substance: ASPIRIN
     Dosage: UNK
  4. RIVAROXABAN [Suspect]
     Active Substance: RIVAROXABAN
     Indication: ATRIAL FIBRILLATION
     Dosage: 20 MG
     Route: 048
     Dates: start: 202007

REACTIONS (3)
  - Heart rate decreased [Unknown]
  - Confusional state [Unknown]
  - Blood pressure decreased [Unknown]

NARRATIVE: CASE EVENT DATE: 202007
